FAERS Safety Report 25821410 (Version 1)
Quarter: 2025Q3

REPORT INFORMATION
  Report Type: Spontaneous
  Country: US (occurrence: US)
  Receive Date: 20250919
  Receipt Date: 20250919
  Transmission Date: 20251020
  Serious: Yes (Other)
  Sender: AUROBINDO
  Company Number: US-AUROBINDO-AUR-APL-2025-046832

PATIENT
  Age: 14 Year
  Sex: Female

DRUGS (13)
  1. DAPSONE [Suspect]
     Active Substance: DAPSONE
     Indication: Type IV hypersensitivity reaction
     Route: 065
  2. DAPSONE [Suspect]
     Active Substance: DAPSONE
     Indication: Hypersensitivity
  3. UPADACITINIB [Suspect]
     Active Substance: UPADACITINIB
     Indication: Type IV hypersensitivity reaction
     Route: 065
  4. UPADACITINIB [Suspect]
     Active Substance: UPADACITINIB
     Indication: Hypersensitivity
  5. MYCOPHENOLIC ACID [Suspect]
     Active Substance: MYCOPHENOLIC ACID
     Indication: Type IV hypersensitivity reaction
     Route: 065
  6. MYCOPHENOLIC ACID [Suspect]
     Active Substance: MYCOPHENOLIC ACID
     Indication: Hypersensitivity
  7. CYCLOSPORINE [Suspect]
     Active Substance: CYCLOSPORINE
     Indication: Type IV hypersensitivity reaction
     Route: 065
  8. CYCLOSPORINE [Suspect]
     Active Substance: CYCLOSPORINE
     Indication: Hypersensitivity
  9. PLAQUENIL [Suspect]
     Active Substance: HYDROXYCHLOROQUINE SULFATE
     Indication: Type IV hypersensitivity reaction
     Route: 065
  10. PLAQUENIL [Suspect]
     Active Substance: HYDROXYCHLOROQUINE SULFATE
     Indication: Hypersensitivity
  11. OMALIZUMAB [Concomitant]
     Active Substance: OMALIZUMAB
     Indication: Type IV hypersensitivity reaction
     Route: 065
  12. DUPILUMAB [Concomitant]
     Active Substance: DUPILUMAB
     Indication: Type IV hypersensitivity reaction
     Dosage: 300 MILLIGRAM, EVERY WEEK
     Route: 065
  13. TEZEPELUMAB [Concomitant]
     Active Substance: TEZEPELUMAB
     Indication: Type IV hypersensitivity reaction
     Route: 065

REACTIONS (1)
  - Drug ineffective [Unknown]
